FAERS Safety Report 25257525 (Version 1)
Quarter: 2025Q2

REPORT INFORMATION
  Report Type: Report from Study
  Country: US (occurrence: US)
  Receive Date: 20250430
  Receipt Date: 20250430
  Transmission Date: 20250716
  Serious: Yes (Other)
  Sender: ALEXION PHARMACEUTICALS
  Company Number: US-AstraZeneca-CH-00853056A

PATIENT
  Age: 66 Year
  Weight: 71.1 kg

DRUGS (1)
  1. OLAPARIB [Suspect]
     Active Substance: OLAPARIB

REACTIONS (5)
  - Lung carcinoma cell type unspecified stage IV [Unknown]
  - Metastases to central nervous system [Unknown]
  - Metastases to lymph nodes [Unknown]
  - Metastases to liver [Unknown]
  - Inability to afford medication [Unknown]
